APPROVED DRUG PRODUCT: ZIDOVUDINE
Active Ingredient: ZIDOVUDINE
Strength: 100MG
Dosage Form/Route: CAPSULE;ORAL
Application: A078128 | Product #001 | TE Code: AB
Applicant: AUROBINDO PHARMA LTD INC
Approved: Mar 27, 2006 | RLD: No | RS: No | Type: RX